FAERS Safety Report 15005029 (Version 1)
Quarter: 2018Q2

REPORT INFORMATION
  Report Type: Spontaneous
  Country: US (occurrence: US)
  Receive Date: 20180613
  Receipt Date: 20180613
  Transmission Date: 20180711
  Serious: No
  Sender: FDA-Public Use
  Company Number: US-COVIS PHARMA B.V.-2018COV03609

PATIENT
  Age: 67 Year
  Sex: Male

DRUGS (3)
  1. COUMADIN [Suspect]
     Active Substance: WARFARIN SODIUM
  2. TYVASO [Suspect]
     Active Substance: TREPROSTINIL
     Dosage: 54 ?G, 4X/DAY
     Dates: start: 20120703
  3. PRILOSEC [Suspect]
     Active Substance: OMEPRAZOLE MAGNESIUM

REACTIONS (2)
  - Diarrhoea [Unknown]
  - Drug interaction [Unknown]
